FAERS Safety Report 8099341 (Version 2)
Quarter: 2013Q1

REPORT INFORMATION
  Report Type: Spontaneous
  Country: US (occurrence: US)
  Receive Date: 20110822
  Receipt Date: 20130311
  Transmission Date: 20140127
  Serious: No
  Sender: FDA-Public Use
  Company Number: US-BIOGENIDEC-2011BI030469

PATIENT
  Age: 42 Year
  Sex: Female

DRUGS (1)
  1. AVONEX [Suspect]
     Indication: MULTIPLE SCLEROSIS
     Route: 030
     Dates: start: 20010223, end: 20080709

REACTIONS (4)
  - Weight decreased [Recovered/Resolved]
  - Drug intolerance [Recovered/Resolved]
  - Malaise [Unknown]
  - Influenza like illness [Recovered/Resolved]
